FAERS Safety Report 7385094-6 (Version None)
Quarter: 2011Q1

REPORT INFORMATION
  Report Type: 
  Country: None (occurrence: None)
  Receive Date: 20110330
  Receipt Date: 20110328
  Transmission Date: 20110831
  Serious: Yes (Death)
  Sender: FDA-Public Use
  Company Number: NL-ROCHE-767951

PATIENT
  Sex: Male
  Weight: 79.5 kg

DRUGS (5)
  1. METFORMIN/VILDAGLIPTIN [Concomitant]
     Dosage: DOSE: 850/50
  2. ASACOL [Concomitant]
  3. TELMISARTAN [Concomitant]
     Dosage: TELMISARTAN: 80/12.5
  4. BEVACIZUMAB [Suspect]
     Indication: COLORECTAL CANCER
     Dosage: DAILY DOSE: 795, 607 MG
     Route: 042
     Dates: start: 20100908
  5. CAPECITABINE [Suspect]
     Indication: COLORECTAL CANCER
     Route: 048
     Dates: start: 20100908

REACTIONS (1)
  - DISEASE PROGRESSION [None]
